FAERS Safety Report 6525021-4 (Version None)
Quarter: 2010Q1

REPORT INFORMATION
  Report Type: 
  Country: None (occurrence: None)
  Receive Date: 20100104
  Receipt Date: 20091222
  Transmission Date: 20100710
  Serious: Yes (Other)
  Sender: FDA-Public Use
  Company Number: JP-PFIZER INC-2009291653

PATIENT
  Age: 61 Year
  Sex: Male
  Weight: 64 kg

DRUGS (10)
  1. SUNITINIB MALATE [Suspect]
     Indication: RENAL CELL CARCINOMA
     Dosage: 50 MG, 1X/DAY
     Route: 048
     Dates: start: 20090401
  2. FULMETA [Concomitant]
     Dosage: UNK
     Route: 062
     Dates: start: 20090526
  3. DERMOVATE [Concomitant]
     Dosage: UNK
     Route: 062
     Dates: start: 20090609
  4. LIDOMEX [Concomitant]
     Dosage: UNK
     Route: 062
     Dates: start: 20090609
  5. JUUZENTAIHOTOU [Concomitant]
     Dosage: 7.5 G, 3X/DAY
     Route: 048
     Dates: start: 20090401
  6. KERATINAMIN [Concomitant]
     Dosage: UNK
     Route: 062
     Dates: start: 20090401
  7. GARASONE [Concomitant]
     Dosage: UNK
     Route: 062
     Dates: start: 20090421
  8. GASTER OD [Concomitant]
     Dosage: UNK
     Route: 048
     Dates: start: 20090526
  9. LOXONIN [Concomitant]
     Dosage: UNK
     Route: 048
     Dates: start: 20090428
  10. MUCOSTA [Concomitant]
     Dosage: UNK
     Route: 048
     Dates: start: 20090428

REACTIONS (3)
  - PAIN IN EXTREMITY [None]
  - PALMAR-PLANTAR ERYTHRODYSAESTHESIA SYNDROME [None]
  - PLATELET COUNT DECREASED [None]
